FAERS Safety Report 4471630-6 (Version None)
Quarter: 2004Q4

REPORT INFORMATION
  Report Type: 
  Country: None (occurrence: None)
  Receive Date: 20041012
  Receipt Date: 20040930
  Transmission Date: 20050328
  Serious: Yes (Other)
  Sender: FDA-Public Use
  Company Number: US-JNJFOC-20040910220

PATIENT
  Sex: Male

DRUGS (17)
  1. NATRECOR [Suspect]
     Dosage: DURATION UNSPECIFIED
     Route: 042
  2. NATRECOR [Suspect]
     Dosage: BOLUS 2 UG/KG
     Route: 042
  3. NATRECOR [Suspect]
     Dosage: 88.8 ML CONTINUOUS INFUSION (MEDICATION ERROR)
     Route: 042
  4. NATRECOR [Suspect]
     Dosage: 2 UG/KG BOLUS (37.3 ML IVP)
     Route: 042
  5. NATRECOR [Suspect]
     Indication: DRUG USE FOR UNKNOWN INDICATION
     Dosage: DOSE UNKNOWN
     Route: 042
  6. ACTOS [Concomitant]
  7. ALLOPURINOL [Concomitant]
  8. COZAAR [Concomitant]
  9. FUROSEMIDE [Concomitant]
     Dosage: THREE IN THE MORNING AND THREE AT NIGHT
  10. FUROSEMIDE [Concomitant]
     Dosage: 6AM AND 2PM
  11. KLOR-CON [Concomitant]
  12. PREVACID [Concomitant]
     Dosage: AM
  13. SYNTHROID [Concomitant]
     Dosage: AM
  14. ZOCOR [Concomitant]
     Dosage: AT NIGHT
  15. ASPIRIN [Concomitant]
     Dosage: 1 TABLET
  16. COREG [Concomitant]
  17. ALDACTONE [Concomitant]

REACTIONS (13)
  - BLOOD CREATININE INCREASED [None]
  - BLOOD PRESSURE DECREASED [None]
  - BLOOD UREA INCREASED [None]
  - CONTUSION [None]
  - COUGH [None]
  - DYSPNOEA EXERTIONAL [None]
  - HEART RATE DECREASED [None]
  - MEDICATION ERROR [None]
  - NAUSEA [None]
  - PLATELET COUNT DECREASED [None]
  - RASH [None]
  - SINUS CONGESTION [None]
  - VOMITING [None]
